FAERS Safety Report 8167453-7 (Version None)
Quarter: 2012Q1

REPORT INFORMATION
  Report Type: 
  Country: None (occurrence: None)
  Receive Date: 20120227
  Receipt Date: 20120227
  Transmission Date: 20120608
  Serious: Yes (Death)
  Sender: FDA-Public Use
  Company Number: US-PFIZER INC-2008002973

PATIENT
  Age: 33 Year
  Sex: Female

DRUGS (6)
  1. GABAPENTIN [Suspect]
     Dosage: OVERDOSE AMOUNT UNKNOWN
     Route: 048
  2. HYDROCODONE [Suspect]
     Dosage: OVERDOSE AMOUNT UNKNOWN
     Route: 048
     Dates: start: 20060101, end: 20060101
  3. TRAMADOL HCL [Suspect]
     Dosage: OVERDOSE AMOUNT UNKNOWN
     Route: 048
     Dates: start: 20060101, end: 20060101
  4. EFFEXOR [Suspect]
     Dosage: OVERDOSE AMOUNT UNKNOWN
     Route: 048
     Dates: start: 20060101, end: 20060101
  5. ATIVAN [Suspect]
     Dosage: UNK
     Route: 048
     Dates: start: 20060101, end: 20060101
  6. ATIVAN [Suspect]

REACTIONS (3)
  - INTENTIONAL OVERDOSE [None]
  - RESPIRATORY ARREST [None]
  - CARDIAC ARREST [None]
